FAERS Safety Report 14494991 (Version 1)
Quarter: 2018Q1

REPORT INFORMATION
  Report Type: Spontaneous
  Country: JP (occurrence: JP)
  Receive Date: 20180206
  Receipt Date: 20180206
  Transmission Date: 20180509
  Serious: Yes (Hospitalization)
  Sender: FDA-Public Use
  Company Number: JP-GE HEALTHCARE LIFE SCIENCES-2018CSU000549

PATIENT

DRUGS (1)
  1. OMNIPAQUE [Suspect]
     Active Substance: IOHEXOL
     Indication: PRODUCT USED FOR UNKNOWN INDICATION
     Dosage: 0.5 ML, SINGLE
     Route: 024
     Dates: start: 20171204, end: 20171204

REACTIONS (2)
  - Off label use [Unknown]
  - Shock [Unknown]

NARRATIVE: CASE EVENT DATE: 20171204
